FAERS Safety Report 22644968 (Version 1)
Quarter: 2023Q2

REPORT INFORMATION
  Report Type: Spontaneous
  Country: US (occurrence: None)
  Receive Date: 20230625
  Receipt Date: 20230625
  Transmission Date: 20230721
  Serious: Yes (Hospitalization)
  Sender: FDA-Public Use
  Company Number: None

PATIENT
  Age: 63 Year
  Sex: Male
  Weight: 143.1 kg

DRUGS (1)
  1. HUMIRA [Suspect]
     Active Substance: ADALIMUMAB

REACTIONS (6)
  - Toxicity to various agents [None]
  - Joint swelling [None]
  - Peripheral swelling [None]
  - Skin exfoliation [None]
  - Skin fissures [None]
  - Skin weeping [None]

NARRATIVE: CASE EVENT DATE: 20230525
